FAERS Safety Report 4962983-0 (Version None)
Quarter: 2006Q2

REPORT INFORMATION
  Report Type: 
  Country: None (occurrence: None)
  Receive Date: 20060405
  Receipt Date: 20060323
  Transmission Date: 20061013
  Serious: Yes (Other)
  Sender: FDA-Public Use
  Company Number: AU-JNJFOC-20060305859

PATIENT
  Age: 48 Year
  Sex: Female

DRUGS (3)
  1. RISPERDAL CONSTA [Suspect]
     Indication: DRUG USE FOR UNKNOWN INDICATION
     Route: 030
  2. HALOPERIDOL [Concomitant]
  3. MIDAZOLAM [Concomitant]

REACTIONS (1)
  - RESPIRATORY ARREST [None]
